FAERS Safety Report 6743044-7 (Version None)
Quarter: 2010Q2

REPORT INFORMATION
  Report Type: 
  Country: None (occurrence: None)
  Receive Date: 20100527
  Receipt Date: 20100517
  Transmission Date: 20101027
  Serious: Yes (Disabling, Other)
  Sender: FDA-Public Use
  Company Number: US-ASTRAZENECA-2007UW08916

PATIENT
  Age: 15884 Day
  Sex: Female
  Weight: 107 kg

DRUGS (15)
  1. SEROQUEL [Suspect]
     Dosage: 25 MG TO 200 MG
     Route: 048
     Dates: start: 20050316
  2. SINGULAIR [Concomitant]
     Route: 048
     Dates: start: 20071016
  3. TOPROL-XL [Concomitant]
     Dosage: 50 MG TO 100 MG DAILY
     Route: 048
     Dates: start: 20050316
  4. ULTRACET [Concomitant]
     Dosage: 37.5 -325 MG TWO TABLETS EVERY  FOUR HOURS AS NEEDED
     Route: 048
     Dates: start: 20071016
  5. AVANDIA [Concomitant]
     Route: 048
     Dates: start: 20071016
  6. PREVACID [Concomitant]
     Route: 048
     Dates: start: 20050316
  7. NEURONTIN [Concomitant]
     Route: 048
     Dates: start: 20071016
  8. ZOCOR [Concomitant]
     Route: 048
     Dates: start: 20071016
  9. FLEXERIL [Concomitant]
     Route: 048
     Dates: start: 20050316
  10. BEXTRA [Concomitant]
     Route: 048
     Dates: start: 20050316
  11. TRAMADOL HCL [Concomitant]
     Route: 048
     Dates: start: 20050316
  12. LORTAB [Concomitant]
     Dosage: 10-500 MG FOUR TIMES A DAY PRN
     Route: 048
     Dates: start: 20050316
  13. ESIDRIX [Concomitant]
     Route: 048
     Dates: start: 20050316
  14. CYMBALTA [Concomitant]
     Dates: start: 20050316
  15. PREDNISONE TAB [Concomitant]
     Dates: start: 20050316

REACTIONS (2)
  - DIABETES MELLITUS [None]
  - NEUROPATHY PERIPHERAL [None]
